FAERS Safety Report 15036686 (Version 1)
Quarter: 2018Q2

REPORT INFORMATION
  Report Type: Spontaneous
  Country: DE (occurrence: DE)
  Receive Date: 20180620
  Receipt Date: 20180620
  Transmission Date: 20180711
  Serious: Yes (Hospitalization)
  Sender: FDA-Public Use
  Company Number: DE-TEVA-2018-DE-911749

PATIENT
  Age: 87 Year
  Sex: Female

DRUGS (2)
  1. FUROSEMID [Suspect]
     Active Substance: FUROSEMIDE
     Dosage: 40 MILLIGRAM DAILY; 40 MG, 1-0-0-0
  2. KALIUM [Concomitant]
     Active Substance: POTASSIUM CHLORIDE
     Dosage: NK MG, 2X / WEEK EACH 1/2 TABLETS, EFFERVESCENT TABLETS

REACTIONS (4)
  - General physical health deterioration [Unknown]
  - Dyspnoea [Unknown]
  - Dehydration [Unknown]
  - Asthenia [Unknown]
